FAERS Safety Report 5464865-7 (Version None)
Quarter: 2007Q3

REPORT INFORMATION
  Report Type: 
  Country: None (occurrence: None)
  Receive Date: 20070921
  Receipt Date: 20070913
  Transmission Date: 20080115
  Serious: Yes (Other)
  Sender: FDA-Public Use
  Company Number: ES-PFIZER INC-2007076402

PATIENT
  Age: 72 Year
  Sex: Male

DRUGS (4)
  1. LINEZOLID [Suspect]
     Indication: INFECTION
     Route: 042
     Dates: start: 20070827, end: 20070910
  2. TEICOPLANIN [Concomitant]
  3. CEFOTAXIME SODIUM [Concomitant]
  4. CLINDAMYCIN HCL [Concomitant]

REACTIONS (1)
  - TORSADE DE POINTES [None]
